FAERS Safety Report 11653117 (Version 1)
Quarter: 2015Q4

REPORT INFORMATION
  Report Type: Spontaneous
  Country: US (occurrence: None)
  Receive Date: 20151022
  Receipt Date: 20151022
  Transmission Date: 20160304
  Serious: Yes (Other)
  Sender: FDA-Public Use
  Company Number: None

PATIENT
  Age: 38 Year
  Sex: Female
  Weight: 70.31 kg

DRUGS (4)
  1. ULTRA FLORA PROBIOTIC [Concomitant]
  2. OMEGA 3 FISH OIL SUPPLEMENT [Concomitant]
  3. BIRTH CONTROL PILLS [Concomitant]
     Active Substance: UNSPECIFIED INGREDIENT
  4. KIRKLAND SIGNATURE ALLER TEC ALLERGY [Suspect]
     Active Substance: CETIRIZINE HYDROCHLORIDE
     Indication: SEASONAL ALLERGY
     Dates: start: 20140401, end: 20151017

REACTIONS (3)
  - Pruritus generalised [None]
  - Sneezing [None]
  - Oropharyngeal pain [None]

NARRATIVE: CASE EVENT DATE: 20151017
